FAERS Safety Report 4284961-X (Version None)
Quarter: 2004Q1

REPORT INFORMATION
  Report Type: 
  Country: None (occurrence: None)
  Receive Date: 20040202
  Receipt Date: 20040120
  Transmission Date: 20041129
  Serious: No
  Sender: FDA-Public Use
  Company Number: 2002112195US

PATIENT
  Age: 64 Year
  Sex: Male
  Weight: 74.8 kg

DRUGS (3)
  1. ESTRACYT  (ESTRAMUSTINE PHOSPHATE) [Suspect]
     Indication: PROSTATE CANCER
     Dosage: 280 MG, TID, CYCLIC
     Dates: start: 20020103, end: 20020116
  2. TOPOSAR [Suspect]
     Indication: PROSTATE CANCER
     Dosage: 100 MG, D1-D14, CYLIC
     Dates: start: 20020103, end: 20020116
  3. TAXOL [Suspect]
     Indication: PROSTATE CANCER
     Dosage: 250 MG, D2, CYLIC
     Dates: start: 20020103, end: 20020116

REACTIONS (6)
  - DEHYDRATION [None]
  - DIARRHOEA [None]
  - FEBRILE NEUTROPENIA [None]
  - ORTHOSTATIC HYPOTENSION [None]
  - THROMBOCYTOPENIA [None]
  - WHITE BLOOD CELL COUNT DECREASED [None]
